FAERS Safety Report 5147385-9 (Version None)
Quarter: 2006Q4

REPORT INFORMATION
  Report Type: 
  Country: None (occurrence: None)
  Receive Date: 20061106
  Receipt Date: 20061027
  Transmission Date: 20070319
  Serious: No
  Sender: FDA-Public Use
  Company Number: CERZ-11380

PATIENT
  Age: 18 Year
  Sex: Female

DRUGS (1)
  1. CEREZYME [Suspect]
     Indication: GAUCHER'S DISEASE
     Dosage: 120 U/KG Q2WKS IV
     Route: 042
     Dates: start: 20040213

REACTIONS (3)
  - MIXED CONNECTIVE TISSUE DISEASE [None]
  - PANCYTOPENIA [None]
  - TREATMENT NONCOMPLIANCE [None]
